FAERS Safety Report 9476699 (Version 1)
Quarter: 2013Q3

REPORT INFORMATION
  Report Type: Spontaneous
  Country: PL (occurrence: PL)
  Receive Date: 20130826
  Receipt Date: 20130826
  Transmission Date: 20140515
  Serious: Yes (Life-Threatening)
  Sender: FDA-Public Use
  Company Number: PHHY2013PL092042

PATIENT
  Age: 72 Year
  Sex: Male
  Weight: 57 kg

DRUGS (3)
  1. DOXORUBICIN [Suspect]
     Indication: LUNG CARCINOMA CELL TYPE UNSPECIFIED STAGE 0
     Route: 042
     Dates: start: 20121218, end: 20121218
  2. VINCRISTINE [Suspect]
     Indication: LUNG CARCINOMA CELL TYPE UNSPECIFIED STAGE 0
     Dosage: 1.5 MG
     Dates: start: 20121218, end: 20121218
  3. ENDOXAN [Suspect]
     Indication: LUNG CARCINOMA CELL TYPE UNSPECIFIED STAGE 0
     Route: 042
     Dates: start: 20121218, end: 20121218

REACTIONS (3)
  - Asthenia [Unknown]
  - Odynophagia [Unknown]
  - Pancytopenia [Unknown]
